FAERS Safety Report 13556580 (Version 1)
Quarter: 2017Q2

REPORT INFORMATION
  Report Type: Spontaneous
  Country: US (occurrence: US)
  Receive Date: 20170517
  Receipt Date: 20170517
  Transmission Date: 20170830
  Serious: No
  Sender: FDA-Public Use
  Company Number: US-SA-2017SA043142

PATIENT
  Age: 64 Year
  Sex: Female
  Weight: 69.85 kg

DRUGS (6)
  1. SOLOSTAR [Suspect]
     Active Substance: DEVICE
     Indication: TYPE 2 DIABETES MELLITUS
     Dates: start: 201702, end: 201703
  2. TOUJEO [Suspect]
     Active Substance: INSULIN GLARGINE
     Indication: TYPE 2 DIABETES MELLITUS
     Dosage: DOSE:15 UNIT(S)
     Route: 065
     Dates: start: 201702, end: 201703
  3. FLEXPEN [Concomitant]
     Active Substance: UNSPECIFIED INGREDIENT
  4. NOVOLOG [Concomitant]
     Active Substance: INSULIN ASPART
     Dosage: SLIDING SCALE
  5. TOUJEO [Suspect]
     Active Substance: INSULIN GLARGINE
     Indication: TYPE 2 DIABETES MELLITUS
     Dosage: DOSE:15 UNIT(S)
     Route: 065
     Dates: start: 201702, end: 201703
  6. SOLOSTAR [Suspect]
     Active Substance: DEVICE
     Indication: TYPE 2 DIABETES MELLITUS
     Dates: start: 201702, end: 201703

REACTIONS (2)
  - Blood glucose increased [Recovered/Resolved]
  - Device use issue [Unknown]

NARRATIVE: CASE EVENT DATE: 201702
